FAERS Safety Report 8928776 (Version 2)
Quarter: 2013Q1

REPORT INFORMATION
  Report Type: Spontaneous
  Country: US (occurrence: US)
  Receive Date: 20121128
  Receipt Date: 20130121
  Transmission Date: 20140127
  Serious: Yes (Death, Other)
  Sender: FDA-Public Use
  Company Number: US-AMGEN-USASP2012076105

PATIENT
  Age: 72 Year
  Sex: Male

DRUGS (1)
  1. PROCRIT [Suspect]
     Indication: ANAEMIA OF MALIGNANT DISEASE
     Dosage: 20000 UNIT, DAILY (NOT ON WEEKENDS), 10 DOSES
     Route: 058
     Dates: start: 20120919, end: 20121002

REACTIONS (4)
  - Prostate cancer [Fatal]
  - Pancytopenia [Unknown]
  - Lower limb fracture [Unknown]
  - Drug ineffective [Unknown]
